FAERS Safety Report 6370071-4 (Version None)
Quarter: 2009Q3

REPORT INFORMATION
  Report Type: 
  Country: None (occurrence: None)
  Receive Date: 20090923
  Receipt Date: 20070510
  Transmission Date: 20100115
  Serious: Yes (Other)
  Sender: FDA-Public Use
  Company Number: US-ASTRAZENECA-2006UW21034

PATIENT
  Age: 12 Year
  Sex: Male
  Weight: 71.2 kg

DRUGS (15)
  1. SEROQUEL [Suspect]
     Indication: BIPOLAR DISORDER
     Route: 048
     Dates: start: 20010101, end: 20050101
  2. SEROQUEL [Suspect]
     Indication: MOOD SWINGS
     Route: 048
     Dates: start: 20010101, end: 20050101
  3. SEROQUEL [Suspect]
     Dosage: 25 MG - 100 MG
     Route: 048
     Dates: start: 20030109
  4. SEROQUEL [Suspect]
     Dosage: 25 MG - 100 MG
     Route: 048
     Dates: start: 20030109
  5. ABILIFY [Concomitant]
     Route: 065
  6. ZOLOFT [Concomitant]
     Indication: ENURESIS
     Dosage: 25 - 100 MG
     Route: 065
     Dates: end: 20020918
  7. DEPAKOTE [Concomitant]
     Dosage: 25 - 250 MG
     Route: 048
     Dates: start: 20020918
  8. RISPERDAL [Concomitant]
     Dosage: 0.5 - 1 MG
     Route: 048
     Dates: start: 20020918
  9. ADDERALL XR 30 [Concomitant]
     Route: 065
  10. TRILEPTAL [Concomitant]
     Route: 048
  11. SYNTHROID [Concomitant]
     Dosage: 0.025 - 0.25 MG
  12. DDAVP [Concomitant]
     Indication: ENURESIS
     Dosage: 0.1 - 0.3 MG
     Route: 048
  13. DDAVP [Concomitant]
     Dosage: 0.1 - 0.3 MG
     Route: 048
  14. PREDNISONE TAB [Concomitant]
     Dosage: 30 - 120 MG
  15. BENADRYL [Concomitant]
     Route: 065

REACTIONS (2)
  - DIABETES MELLITUS [None]
  - TARDIVE DYSKINESIA [None]
